FAERS Safety Report 12822235 (Version 2)
Quarter: 2017Q4

REPORT INFORMATION
  Report Type: Report from Study
  Country: US (occurrence: US)
  Receive Date: 20161006
  Receipt Date: 20171004
  Transmission Date: 20180320
  Serious: No
  Sender: FDA-Public Use
  Company Number: US-AMGEN-USASL2016022873

PATIENT
  Age: 64 Year
  Sex: Female

DRUGS (2)
  1. FLAGYL [Concomitant]
     Active Substance: METRONIDAZOLE\METRONIDAZOLE HYDROCHLORIDE
     Dosage: UNK
  2. PROLIA [Suspect]
     Active Substance: DENOSUMAB
     Indication: PRODUCT USED FOR UNKNOWN INDICATION
     Dosage: UNK
     Route: 065
     Dates: start: 20150520

REACTIONS (7)
  - Impaired healing [Unknown]
  - Endodontic procedure [Unknown]
  - Dental cleaning [Unknown]
  - Tooth extraction [Unknown]
  - Tooth infection [Unknown]
  - Tooth disorder [Unknown]
  - Dental operation [Unknown]
